FAERS Safety Report 6092360-3 (Version None)
Quarter: 2009Q1

REPORT INFORMATION
  Report Type: 
  Country: None (occurrence: None)
  Receive Date: 20090223
  Receipt Date: 20090223
  Transmission Date: 20090719
  Serious: No
  Sender: FDA-Public Use
  Company Number: None

PATIENT
  Sex: Male
  Weight: 84.55 kg

DRUGS (6)
  1. DYAZIDE [Suspect]
     Dosage: 1 CAPSULE QD ORAL
     Route: 048
     Dates: start: 20090202, end: 20090221
  2. AMITRIPTYLINE HCL [Concomitant]
  3. DIPHENHYDRAMINE ORAL [Concomitant]
  4. LISINOPRIL [Concomitant]
  5. MVI (MULTIVITAMINS) [Concomitant]
  6. PERCOCET 5 MG/35 MG (OXYCODONE 5 MG/ ACETAMINOPHEN 325) [Concomitant]

REACTIONS (1)
  - HYPERCALCAEMIA [None]
